FAERS Safety Report 10260970 (Version 1)
Quarter: 2014Q2

REPORT INFORMATION
  Report Type: Spontaneous
  Country: US (occurrence: US)
  Receive Date: 20140626
  Receipt Date: 20140626
  Transmission Date: 20141212
  Serious: No
  Sender: FDA-Public Use
  Company Number: US-PFIZER INC-2014171527

PATIENT
  Sex: Male

DRUGS (2)
  1. LYRICA [Suspect]
     Indication: PARAESTHESIA
     Dosage: UNK
  2. LYRICA [Suspect]
     Indication: PAIN

REACTIONS (3)
  - Intentional product misuse [Unknown]
  - Therapeutic response changed [Unknown]
  - Pre-existing condition improved [Unknown]
